FAERS Safety Report 15025542 (Version 2)
Quarter: 2018Q3

REPORT INFORMATION
  Report Type: Spontaneous
  Country: US (occurrence: US)
  Receive Date: 20180618
  Receipt Date: 20180724
  Transmission Date: 20181010
  Serious: No
  Sender: FDA-Public Use
  Company Number: US-009507513-1806USA003175

PATIENT
  Age: 17 Year
  Sex: Female
  Weight: 129.25 kg

DRUGS (2)
  1. NEXPLANON [Suspect]
     Active Substance: ETONOGESTREL
     Dosage: 1 IMPLANT, EVERY THREE YEARS, AT RIGHT ARM
     Route: 059
     Dates: start: 20180706
  2. NEXPLANON [Suspect]
     Active Substance: ETONOGESTREL
     Indication: CONTRACEPTION
     Dosage: 1 IMPLANT, EVERY THREE YEARS, AT RIGHT ARM
     Route: 059
     Dates: start: 20180406, end: 20180706

REACTIONS (3)
  - Device breakage [Recovered/Resolved]
  - Device kink [Recovered/Resolved]
  - Medical device site discomfort [Unknown]

NARRATIVE: CASE EVENT DATE: 2018
